FAERS Safety Report 5365761-6 (Version None)
Quarter: 2007Q2

REPORT INFORMATION
  Report Type: 
  Country: None (occurrence: None)
  Receive Date: 20070611
  Receipt Date: 20070321
  Transmission Date: 20071010
  Serious: Yes (Other)
  Sender: FDA-Public Use
  Company Number: USA-2007-0026833

PATIENT
  Age: 42 Year
  Sex: Female
  Weight: 51.7 kg

DRUGS (3)
  1. OXYCONTIN [Suspect]
     Indication: PAIN
  2. PERCOCET [Suspect]
     Indication: PAIN
  3. VALIUM [Suspect]
     Indication: PAIN

REACTIONS (2)
  - DRUG DEPENDENCE [None]
  - FEELING ABNORMAL [None]
